FAERS Safety Report 4481107-X (Version None)
Quarter: 2004Q4

REPORT INFORMATION
  Report Type: 
  Country: None (occurrence: None)
  Receive Date: 20041021
  Receipt Date: 20030130
  Transmission Date: 20050328
  Serious: Yes (Hospitalization, Disabling, Other)
  Sender: FDA-Public Use
  Company Number: US-MERCK-0301USA03177

PATIENT
  Age: 38 Year
  Sex: Female
  Weight: 77 kg

DRUGS (21)
  1. VIOXX [Suspect]
     Indication: SURGERY
     Route: 048
     Dates: start: 20011101
  2. VIOXX [Suspect]
     Indication: BACK PAIN
     Route: 048
     Dates: start: 20011101
  3. TENORMIN [Concomitant]
     Indication: HYPERTENSION
     Route: 065
     Dates: start: 19980117
  4. TENORMIN [Concomitant]
     Indication: HEART RATE INCREASED
     Route: 065
     Dates: start: 19980117
  5. COUMADIN [Suspect]
     Indication: THROMBOSIS
     Route: 065
     Dates: start: 19980117
  6. COUMADIN [Suspect]
     Indication: CARDIAC VALVE DISEASE
     Route: 065
     Dates: start: 19980117
  7. VICODIN [Concomitant]
     Route: 065
  8. NITROSTAT [Concomitant]
     Indication: CHEST PAIN
     Route: 065
  9. ALBUTEROL [Concomitant]
     Route: 065
  10. NAPROXEN [Concomitant]
     Route: 065
     Dates: end: 20020701
  11. VASOTEC [Concomitant]
     Route: 048
     Dates: start: 19980101
  12. LOPRESSOR [Concomitant]
     Route: 065
     Dates: start: 19980101
  13. DIGOXIN [Concomitant]
     Route: 065
     Dates: start: 19980101
  14. TICLID [Concomitant]
     Route: 065
     Dates: start: 19980101
  15. TYLENOL [Concomitant]
     Route: 065
     Dates: start: 19980101
  16. [THERAPY UNSPECIFIED] [Concomitant]
     Route: 065
     Dates: start: 19980101
  17. ISORDIL [Concomitant]
     Route: 065
  18. ANZEMET [Concomitant]
     Route: 065
  19. RESTORIL [Concomitant]
     Route: 065
  20. ASPIRIN [Concomitant]
     Indication: PROPHYLAXIS
     Route: 065
     Dates: start: 19980117
  21. ASPIRIN [Concomitant]
     Indication: PROPHYLAXIS
     Route: 065
     Dates: start: 19980117

REACTIONS (71)
  - ABDOMINAL PAIN [None]
  - ABDOMINAL PAIN UPPER [None]
  - ACUTE CORONARY SYNDROME [None]
  - ANGINA UNSTABLE [None]
  - ANXIETY [None]
  - ASTHENIA [None]
  - ATELECTASIS [None]
  - BACK PAIN [None]
  - BALANCE DISORDER [None]
  - BLOOD PRESSURE INCREASED [None]
  - BLOOD TRIGLYCERIDES INCREASED [None]
  - BRONCHITIS [None]
  - CARDIAC MURMUR [None]
  - CARDIOMEGALY [None]
  - CEREBROVASCULAR ACCIDENT [None]
  - CHEST PAIN [None]
  - CHILLS [None]
  - CHRONIC OBSTRUCTIVE AIRWAYS DISEASE [None]
  - COAGULOPATHY [None]
  - CONTUSION [None]
  - DEAFNESS BILATERAL [None]
  - DEAFNESS NEUROSENSORY [None]
  - DIARRHOEA [None]
  - DIFFICULTY IN WALKING [None]
  - DIZZINESS [None]
  - DRUG EFFECT DECREASED [None]
  - DYSPNOEA [None]
  - DYSURIA [None]
  - EPISTAXIS [None]
  - FAECES DISCOLOURED [None]
  - FALL [None]
  - GASTROINTESTINAL DISORDER [None]
  - GINGIVAL BLEEDING [None]
  - HAEMATOCHEZIA [None]
  - HAEMORRHAGE [None]
  - HEART RATE IRREGULAR [None]
  - HEMIPARESIS [None]
  - HYPERTENSION [None]
  - HYPOAESTHESIA [None]
  - INJURY [None]
  - INSOMNIA [None]
  - INTERNATIONAL NORMALISED RATIO DECREASED [None]
  - INTERVERTEBRAL DISC DISORDER [None]
  - INTERVERTEBRAL DISC PROTRUSION [None]
  - IRON DEFICIENCY ANAEMIA [None]
  - LIMB DISCOMFORT [None]
  - LUNG DISORDER [None]
  - MENSTRUAL DISORDER [None]
  - MOUTH HAEMORRHAGE [None]
  - NECK PAIN [None]
  - NERVE COMPRESSION [None]
  - ODYNOPHAGIA [None]
  - OEDEMA [None]
  - OEDEMA PERIPHERAL [None]
  - ORTHOPNOEA [None]
  - OSTEOARTHRITIS [None]
  - PALPITATIONS [None]
  - PARAESTHESIA [None]
  - PERONEAL NERVE PALSY [None]
  - POST PROCEDURAL COMPLICATION [None]
  - RADICULITIS [None]
  - RENAL DISORDER [None]
  - RESTRICTIVE PULMONARY DISEASE [None]
  - SCIATICA [None]
  - SENSORY LOSS [None]
  - SILENT MYOCARDIAL INFARCTION [None]
  - SLEEP DISORDER [None]
  - STRESS INCONTINENCE [None]
  - TRANSIENT ISCHAEMIC ATTACK [None]
  - URINARY TRACT INFECTION [None]
  - WHEEZING [None]
